FAERS Safety Report 16904349 (Version 1)
Quarter: 2019Q4

REPORT INFORMATION
  Report Type: Spontaneous
  Country: US (occurrence: US)
  Receive Date: 20191009
  Receipt Date: 20191009
  Transmission Date: 20200122
  Serious: Yes (Other)
  Sender: FDA-Public Use
  Company Number: None

PATIENT
  Age: 56 Year
  Sex: Female
  Weight: 67.95 kg

DRUGS (7)
  1. LORAZEPAM 2 MG [Suspect]
     Active Substance: LORAZEPAM
     Indication: SLEEP DISORDER
     Route: 048
     Dates: start: 20190906, end: 20191006
  2. LORAZEPAM 2 MG [Suspect]
     Active Substance: LORAZEPAM
     Indication: ANXIETY
     Route: 048
     Dates: start: 20190906, end: 20191006
  3. BREO ELLIPTA [Concomitant]
     Active Substance: FLUTICASONE FUROATE\VILANTEROL TRIFENATATE
  4. OLANXAPINE [Concomitant]
  5. ASPIRIN. [Concomitant]
     Active Substance: ASPIRIN
  6. MULTIVITAMIN [Concomitant]
     Active Substance: VITAMINS
  7. LITHIUM. [Concomitant]
     Active Substance: LITHIUM

REACTIONS (4)
  - Product substitution issue [None]
  - Anxiety [None]
  - Treatment failure [None]
  - Insomnia [None]

NARRATIVE: CASE EVENT DATE: 20191006
